FAERS Safety Report 9783950 (Version 1)
Quarter: 2013Q4

REPORT INFORMATION
  Report Type: Spontaneous
  Country: US (occurrence: US)
  Receive Date: 20131226
  Receipt Date: 20131226
  Transmission Date: 20140711
  Serious: No
  Sender: FDA-Public Use
  Company Number: US-PFIZER INC-2013366537

PATIENT
  Sex: Female

DRUGS (2)
  1. CELEBREX [Suspect]
     Indication: CANCER PAIN
     Dosage: UNK
  2. CELEBREX [Suspect]
     Dosage: 100 MG, UNK

REACTIONS (2)
  - Off label use [Unknown]
  - Eye disorder [Recovered/Resolved]
